FAERS Safety Report 7158730-7 (Version None)
Quarter: 2010Q4

REPORT INFORMATION
  Report Type: 
  Country: None (occurrence: None)
  Receive Date: 20101214
  Receipt Date: 20101208
  Transmission Date: 20110411
  Serious: Yes (Other)
  Sender: FDA-Public Use
  Company Number: US-ALLERGAN-1015927US

PATIENT
  Age: 67 Year
  Sex: Female

DRUGS (1)
  1. RESTASISA? [Suspect]
     Indication: DRY EYE
     Dosage: 1 GTT, BID
     Route: 047
     Dates: start: 20100901, end: 20101101

REACTIONS (2)
  - DYSPNOEA [None]
  - THROAT TIGHTNESS [None]
